FAERS Safety Report 5388522-0 (Version None)
Quarter: 2007Q3

REPORT INFORMATION
  Report Type: 
  Country: None (occurrence: None)
  Receive Date: 20070716
  Receipt Date: 20070530
  Transmission Date: 20080115
  Serious: No
  Sender: FDA-Public Use
  Company Number: US-BRISTOL-MYERS SQUIBB COMPANY-13797451

PATIENT
  Sex: Female

DRUGS (1)
  1. SINEMET CR [Suspect]

REACTIONS (3)
  - BODY TEMPERATURE FLUCTUATION [None]
  - HOT FLUSH [None]
  - PARAESTHESIA [None]
